FAERS Safety Report 20660014 (Version 3)
Quarter: 2022Q2

REPORT INFORMATION
  Report Type: Spontaneous
  Country: US (occurrence: None)
  Receive Date: 20220331
  Receipt Date: 20220419
  Transmission Date: 20220721
  Serious: Yes (Hospitalization)
  Sender: FDA-Public Use
  Company Number: US-ROCHE-3062327

PATIENT
  Age: 58 Year
  Sex: Female
  Weight: 56.750 kg

DRUGS (1)
  1. OCREVUS [Suspect]
     Active Substance: OCRELIZUMAB
     Indication: Secondary progressive multiple sclerosis
     Route: 042
     Dates: start: 20180415

REACTIONS (4)
  - COVID-19 [Recovered/Resolved with Sequelae]
  - Lower respiratory tract inflammation [Recovered/Resolved]
  - Adrenal insufficiency [Recovering/Resolving]
  - Pulmonary embolism [Unknown]

NARRATIVE: CASE EVENT DATE: 20210101
